FAERS Safety Report 20575648 (Version 1)
Quarter: 2022Q1

REPORT INFORMATION
  Report Type: Spontaneous
  Country: ES (occurrence: ES)
  Receive Date: 20220310
  Receipt Date: 20220310
  Transmission Date: 20220424
  Serious: Yes (Other)
  Sender: FDA-Public Use
  Company Number: ES-AEMPS-1125100

PATIENT

DRUGS (4)
  1. LEVOFLOXACIN [Suspect]
     Active Substance: LEVOFLOXACIN
     Indication: Product used for unknown indication
     Dosage: 500 MILLIGRAM, BID, EVERY 12 HOURS (BID)
     Route: 048
     Dates: start: 20220223, end: 20220223
  2. CLOBISDIN [Concomitant]
     Indication: Product used for unknown indication
     Dosage: UNK, EVERY 24 HR (QD)
     Route: 061
     Dates: start: 20220208
  3. KETOCONAZOL CINFA [Concomitant]
     Indication: Product used for unknown indication
     Dosage: UNK, EVERY 24 HR
     Route: 061
     Dates: start: 20220215
  4. CICLOPIROX OLAMINE [Concomitant]
     Active Substance: CICLOPIROX OLAMINE
     Indication: Product used for unknown indication
     Dosage: UNK, EVERY 72 HR
     Route: 061
     Dates: start: 20220208

REACTIONS (1)
  - Anaphylactic reaction [Recovered/Resolved]

NARRATIVE: CASE EVENT DATE: 20220223
